FAERS Safety Report 9738837 (Version 2)
Quarter: 2014Q1

REPORT INFORMATION
  Report Type: Spontaneous
  Country: US (occurrence: US)
  Receive Date: 20131209
  Receipt Date: 20140116
  Transmission Date: 20141002
  Serious: No
  Sender: FDA-Public Use
  Company Number: US-PFIZER INC-2013346061

PATIENT
  Age: 87 Year
  Sex: Male

DRUGS (1)
  1. INLYTA [Suspect]
     Indication: RENAL CELL CARCINOMA
     Dosage: 5 MG, 2X/DAY
     Dates: start: 20131002

REACTIONS (6)
  - Proctalgia [Unknown]
  - Fatigue [Unknown]
  - Dysphonia [Unknown]
  - Diarrhoea [Unknown]
  - Decreased appetite [Unknown]
  - Thyroid disorder [Unknown]
